FAERS Safety Report 9031986 (Version 2)
Quarter: 2013Q1

REPORT INFORMATION
  Report Type: Report from Study
  Country: IT (occurrence: IT)
  Receive Date: 20130125
  Receipt Date: 20130321
  Transmission Date: 20140127
  Serious: No
  Sender: FDA-Public Use
  Company Number: IT-ASTELLAS-2013EU000459

PATIENT
  Age: 54 Year
  Sex: Male

DRUGS (5)
  1. ENZALUTAMIDE [Suspect]
     Indication: PROSTATE CANCER METASTATIC
     Dosage: 160 MG, UID/QD
     Route: 048
     Dates: start: 20121228, end: 20130108
  2. ENZALUTAMIDE [Suspect]
     Dosage: UNK
     Route: 065
     Dates: start: 20130215
  3. CIPROXIN                           /00697201/ [Concomitant]
     Indication: BLADDER CATHETERISATION
     Dosage: 500 MG, BID
     Route: 048
     Dates: start: 20130104, end: 20130105
  4. TAREG [Concomitant]
     Indication: HYPERTENSION
     Dosage: 800 MG, UID/QD
     Route: 048
     Dates: start: 2011
  5. XATRAL [Concomitant]
     Indication: BENIGN PROSTATIC HYPERPLASIA
     Dosage: 10 MG, UID/QD
     Route: 048
     Dates: start: 2011

REACTIONS (2)
  - Hypersensitivity [Recovered/Resolved]
  - Eczema [Recovered/Resolved]
